FAERS Safety Report 8112134-9 (Version None)
Quarter: 2012Q1

REPORT INFORMATION
  Report Type: 
  Country: None (occurrence: None)
  Receive Date: 20120203
  Receipt Date: 20120127
  Transmission Date: 20120608
  Serious: No
  Sender: FDA-Public Use
  Company Number: US-BAYER-2012-009676

PATIENT
  Sex: Male

DRUGS (3)
  1. NORVASC [Concomitant]
     Indication: RAYNAUD'S PHENOMENON
  2. REFLUDAN [Suspect]
  3. SILDENAFIL [Concomitant]
     Indication: RAYNAUD'S PHENOMENON

REACTIONS (3)
  - ACTIVATED PARTIAL THROMBOPLASTIN TIME PROLONGED [None]
  - HYPERAEMIA [None]
  - SKIN DISCOLOURATION [None]
